FAERS Safety Report 17151223 (Version 1)
Quarter: 2019Q4

REPORT INFORMATION
  Report Type: Spontaneous
  Country: US (occurrence: DE)
  Receive Date: 20191213
  Receipt Date: 20191213
  Transmission Date: 20200122
  Serious: Yes (Other)
  Sender: FDA-Public Use
  Company Number: US-SUNOVION-2019SUN005382

PATIENT

DRUGS (5)
  1. SALBUTAMOL CT [Concomitant]
     Indication: CHRONIC OBSTRUCTIVE PULMONARY DISEASE
     Dosage: UNK UNK, PRN (AS REQUIRED)
     Route: 065
     Dates: start: 20160818, end: 20191129
  2. GLYCOPYRROLATE. [Suspect]
     Active Substance: GLYCOPYRROLATE
     Indication: CHRONIC OBSTRUCTIVE PULMONARY DISEASE
     Dosage: 50 UG, QD (44UG) (IN THE MORNING)
     Route: 055
     Dates: start: 20160818, end: 20191129
  3. DAXAS [Concomitant]
     Active Substance: ROFLUMILAST
     Indication: CHRONIC OBSTRUCTIVE PULMONARY DISEASE
     Dosage: 500 UG, QD (IN THE MORNING)
     Route: 065
     Dates: start: 20160818, end: 20191129
  4. FOSTER [Concomitant]
     Active Substance: BECLOMETHASONE\FORMOTEROL
     Indication: CHRONIC OBSTRUCTIVE PULMONARY DISEASE
     Dosage: 106 UG, BID (100/6) (IN THE MORNING AND IN THE EVENING)
     Route: 055
     Dates: start: 20160818, end: 20191129
  5. IPRAMOL TEVA [Concomitant]
     Indication: CHRONIC OBSTRUCTIVE PULMONARY DISEASE
     Dosage: UNK UNK, PRN (AS REQUIRED)
     Route: 065
     Dates: start: 20170602, end: 20191129

REACTIONS (1)
  - Chronic obstructive pulmonary disease [Unknown]
